FAERS Safety Report 5899198-8 (Version None)
Quarter: 2008Q3

REPORT INFORMATION
  Report Type: 
  Country: None (occurrence: None)
  Receive Date: 20080925
  Receipt Date: 20080911
  Transmission Date: 20090109
  Serious: No
  Sender: FDA-Public Use
  Company Number: US-B.I. PHARMACEUTICALS,INC./RIDGEFIELD-2008-BP-12523BP

PATIENT
  Sex: Female

DRUGS (5)
  1. COMBIVENT [Suspect]
     Dosage: 2 PUFFS, 2 TO 4 TIMES A DAY.
     Route: 055
  2. METOPROLOL SUCCINATE EXTENDED RELEASE [Concomitant]
     Dosage: 25MG
  3. SIMVASTATIN [Concomitant]
     Dosage: 40MG
  4. WARFARIN SODIUM [Concomitant]
     Dosage: UP TO 4 MG AS DIRECTED
  5. SINGULAIR [Concomitant]
     Dosage: 10MG

REACTIONS (2)
  - DRUG INEFFECTIVE [None]
  - DYSGEUSIA [None]
